FAERS Safety Report 16356313 (Version 2)
Quarter: 2019Q2

REPORT INFORMATION
  Report Type: Report from Study
  Country: None (occurrence: CO)
  Receive Date: 20190527
  Receipt Date: 20190628
  Transmission Date: 20190711
  Serious: Yes (Other)
  Sender: FDA-Public Use
  Company Number: CO-ABBVIE-19K-036-2797456-00

PATIENT
  Age: 69 Year
  Sex: Female
  Weight: 73 kg

DRUGS (2)
  1. HUMIRA [Suspect]
     Active Substance: ADALIMUMAB
     Indication: PSORIASIS
     Route: 058
     Dates: end: 20190417
  2. HUMIRA [Suspect]
     Active Substance: ADALIMUMAB
     Indication: PSORIASIS
     Route: 058
     Dates: start: 20110214

REACTIONS (12)
  - Psoriasis [Unknown]
  - Pain in jaw [Unknown]
  - Oral mucosal erythema [Unknown]
  - Medical device implantation [Unknown]
  - Hypersensitivity [Unknown]
  - Eye discharge [Unknown]
  - Intervertebral disc protrusion [Recovering/Resolving]
  - Odynophagia [Unknown]
  - Arthralgia [Not Recovered/Not Resolved]
  - Spinal osteoarthritis [Recovering/Resolving]
  - Ocular hyperaemia [Unknown]
  - Lacrimation increased [Unknown]

NARRATIVE: CASE EVENT DATE: 2019
